FAERS Safety Report 4676700-5 (Version None)
Quarter: 2005Q2

REPORT INFORMATION
  Report Type: 
  Country: None (occurrence: None)
  Receive Date: 20050527
  Receipt Date: 20040831
  Transmission Date: 20051028
  Serious: Yes (Death)
  Sender: FDA-Public Use
  Company Number: 2005AP00712

PATIENT
  Age: 30587 Day
  Sex: Female

DRUGS (3)
  1. IRESSA [Suspect]
     Indication: LUNG ADENOCARCINOMA
     Route: 048
     Dates: start: 20020830, end: 20021105
  2. RADIATION THERAPY [Concomitant]
     Dosage: ADMINISTERED TO RIGHT LOWER LOBE, 60 GY
     Dates: start: 20020513, end: 20020619
  3. VINORELBINE TARTRATE [Concomitant]
     Dosage: ADMINISTERED FOR 1 COURSE
     Dates: start: 20020828

REACTIONS (1)
  - PULMONARY EMBOLISM [None]
